FAERS Safety Report 16306254 (Version 2)
Quarter: 2021Q1

REPORT INFORMATION
  Report Type: Spontaneous
  Country: US (occurrence: US)
  Receive Date: 20190513
  Receipt Date: 20210203
  Transmission Date: 20210419
  Serious: Yes (Other)
  Sender: FDA-Public Use
  Company Number: US-ASTRAZENECA-2019SE65812

PATIENT
  Age: 44 Year
  Sex: Male
  Weight: 136.1 kg

DRUGS (86)
  1. HYDROCODONE [Concomitant]
     Active Substance: HYDROCODONE
     Indication: PAIN
     Dates: start: 20191118, end: 20200118
  2. ROLAIDS [Concomitant]
     Active Substance: CALCIUM CARBONATE\MAGNESIUM HYDROXIDE
     Dates: start: 1993, end: 2000
  3. BUMETANIDE. [Concomitant]
     Active Substance: BUMETANIDE
  4. SYMBICORT [Concomitant]
     Active Substance: BUDESONIDE\FORMOTEROL FUMARATE DIHYDRATE
  5. CLOPIDOGREL [Concomitant]
     Active Substance: CLOPIDOGREL BISULFATE
  6. DOCUSATE SODIUM. [Concomitant]
     Active Substance: DOCUSATE SODIUM
  7. NICOTINE. [Concomitant]
     Active Substance: NICOTINE
  8. ONDANSETRON [Concomitant]
     Active Substance: ONDANSETRON
  9. LYRICA [Concomitant]
     Active Substance: PREGABALIN
  10. SIMVASTATIN. [Concomitant]
     Active Substance: SIMVASTATIN
  11. DIAZEPAM. [Concomitant]
     Active Substance: DIAZEPAM
  12. HYZAAR [Concomitant]
     Active Substance: HYDROCHLOROTHIAZIDE\LOSARTAN POTASSIUM
  13. KETOCONAZOLE. [Concomitant]
     Active Substance: KETOCONAZOLE
  14. VIDEX [Concomitant]
     Active Substance: DIDANOSINE
  15. CARTIA [Concomitant]
  16. ENTRESTO [Concomitant]
     Active Substance: SACUBITRIL\VALSARTAN
  17. DULERA [Concomitant]
     Active Substance: FORMOTEROL FUMARATE DIHYDRATE\MOMETASONE FUROATE
  18. MUPIROCIN. [Concomitant]
     Active Substance: MUPIROCIN
  19. IBUPROFEN. [Concomitant]
     Active Substance: IBUPROFEN
  20. ERYTHROMYCIN. [Concomitant]
     Active Substance: ERYTHROMYCIN
  21. AMITRIPTYLINE [Concomitant]
     Active Substance: AMITRIPTYLINE
  22. NITROGLYCERIN. [Concomitant]
     Active Substance: NITROGLYCERIN
     Indication: ANGINA PECTORIS
     Dates: start: 20191102
  23. VENTOLIN [Concomitant]
     Active Substance: ALBUTEROL SULFATE
  24. CYCLOBENZAPRINE. [Concomitant]
     Active Substance: CYCLOBENZAPRINE
  25. ATORVASTATIN [Concomitant]
     Active Substance: ATORVASTATIN
  26. POTASSIUM CHLORIDE. [Concomitant]
     Active Substance: POTASSIUM CHLORIDE
  27. EPLERENONE. [Concomitant]
     Active Substance: EPLERENONE
  28. AMIODARONE [Concomitant]
     Active Substance: AMIODARONE
  29. LIDOCAINE. [Concomitant]
     Active Substance: LIDOCAINE
  30. PROMETHAZINE [Concomitant]
     Active Substance: PROMETHAZINE HYDROCHLORIDE
  31. POLYETHYLENE GLYCOL [Concomitant]
     Active Substance: POLYETHYLENE GLYCOLS
  32. NEXIUM [Suspect]
     Active Substance: ESOMEPRAZOLE MAGNESIUM
     Indication: GASTROOESOPHAGEAL REFLUX DISEASE
     Dosage: GENERIC
     Route: 065
     Dates: start: 201501, end: 2017
  33. ALKA?SELTZER [Concomitant]
     Active Substance: ANHYDROUS CITRIC ACID\ASPIRIN\SODIUM BICARBONATE
     Dates: start: 1993, end: 2000
  34. PREDNISONE. [Concomitant]
     Active Substance: PREDNISONE
  35. BACTRIM [Concomitant]
     Active Substance: SULFAMETHOXAZOLE\TRIMETHOPRIM
  36. SILVER SULFADIAZINE. [Concomitant]
     Active Substance: SILVER SULFADIAZINE
  37. ENOXAPARIN [Concomitant]
     Active Substance: ENOXAPARIN
  38. PAROXETINE. [Concomitant]
     Active Substance: PAROXETINE
  39. NEXIUM [Suspect]
     Active Substance: ESOMEPRAZOLE MAGNESIUM
     Indication: GASTROOESOPHAGEAL REFLUX DISEASE
     Route: 048
     Dates: start: 2008, end: 201501
  40. NEXIUM [Suspect]
     Active Substance: ESOMEPRAZOLE MAGNESIUM
     Indication: GASTROOESOPHAGEAL REFLUX DISEASE
     Dosage: CAPSULE
     Route: 048
     Dates: start: 20180730
  41. PRILOSEC [Suspect]
     Active Substance: OMEPRAZOLE MAGNESIUM
     Indication: GASTROOESOPHAGEAL REFLUX DISEASE
     Route: 048
     Dates: start: 200001, end: 200612
  42. SPIRIVA [Concomitant]
     Active Substance: TIOTROPIUM BROMIDE MONOHYDRATE
  43. NARCAN [Concomitant]
     Active Substance: NALOXONE HYDROCHLORIDE
  44. MELATONIN [Concomitant]
     Active Substance: MELATONIN
  45. FUROSEMIDE. [Concomitant]
     Active Substance: FUROSEMIDE
  46. HYDROCHLOROTHIAZIDE. [Concomitant]
     Active Substance: HYDROCHLOROTHIAZIDE
  47. NITROSTAT [Concomitant]
     Active Substance: NITROGLYCERIN
  48. ATENOLOL. [Concomitant]
     Active Substance: ATENOLOL
  49. WARFARIN [Concomitant]
     Active Substance: WARFARIN
  50. ASPIRIN. [Concomitant]
     Active Substance: ASPIRIN
  51. DULOXETINE. [Concomitant]
     Active Substance: DULOXETINE
  52. ZIAGEN [Concomitant]
     Active Substance: ABACAVIR SULFATE
  53. PRILOSEC [Suspect]
     Active Substance: OMEPRAZOLE MAGNESIUM
     Indication: GASTROOESOPHAGEAL REFLUX DISEASE
     Dosage: GENERIC
     Route: 065
     Dates: start: 200211, end: 2017
  54. PREVACID [Suspect]
     Active Substance: LANSOPRAZOLE
     Indication: GASTROOESOPHAGEAL REFLUX DISEASE
     Route: 065
     Dates: start: 200001, end: 200612
  55. ZANTAC [Concomitant]
     Active Substance: RANITIDINE HYDROCHLORIDE
     Dates: start: 1993, end: 2000
  56. CARVEDILOL. [Concomitant]
     Active Substance: CARVEDILOL
  57. VITAMIN D2 [Concomitant]
     Active Substance: ERGOCALCIFEROL
  58. HYDROCODONE/ACETAMINOPHEN [Concomitant]
     Active Substance: ACETAMINOPHEN\HYDROCODONE
  59. AZELASTINE. [Concomitant]
     Active Substance: AZELASTINE HYDROCHLORIDE
  60. BUSPIRONE [Concomitant]
     Active Substance: BUSPIRONE HYDROCHLORIDE
  61. BUPROPION. [Concomitant]
     Active Substance: BUPROPION
  62. FENTANYL. [Concomitant]
     Active Substance: FENTANYL
  63. FLOVENT [Concomitant]
     Active Substance: FLUTICASONE PROPIONATE
  64. DOXYCYCLINE. [Concomitant]
     Active Substance: DOXYCYCLINE
  65. AMOXICILLIN. [Concomitant]
     Active Substance: AMOXICILLIN
  66. NEXIUM [Suspect]
     Active Substance: ESOMEPRAZOLE MAGNESIUM
     Indication: GASTROOESOPHAGEAL REFLUX DISEASE
     Route: 048
     Dates: start: 200001, end: 200612
  67. PREVACID [Suspect]
     Active Substance: LANSOPRAZOLE
     Indication: GASTROOESOPHAGEAL REFLUX DISEASE
     Dosage: GENERIC
     Route: 065
     Dates: start: 201010, end: 2017
  68. BIKTARVY [Concomitant]
     Active Substance: BICTEGRAVIR SODIUM\EMTRICITABINE\TENOFOVIR ALAFENAMIDE FUMARATE
     Indication: HIV INFECTION
     Dates: start: 2000
  69. ALPRAZOLAM. [Concomitant]
     Active Substance: ALPRAZOLAM
  70. LISINOPRIL. [Concomitant]
     Active Substance: LISINOPRIL
  71. GABAPENTIN. [Concomitant]
     Active Substance: GABAPENTIN
  72. ALUPENT [Concomitant]
     Active Substance: METAPROTERENOL SULFATE
  73. METOPROLOL TARTRATE. [Concomitant]
     Active Substance: METOPROLOL TARTRATE
  74. PRILOSEC [Suspect]
     Active Substance: OMEPRAZOLE MAGNESIUM
     Indication: GASTROOESOPHAGEAL REFLUX DISEASE
     Route: 048
     Dates: start: 1993, end: 200211
  75. PREVACID [Suspect]
     Active Substance: LANSOPRAZOLE
     Indication: GASTROOESOPHAGEAL REFLUX DISEASE
     Route: 065
     Dates: start: 2000, end: 201010
  76. COLLAGENASE SANTYL [Concomitant]
     Active Substance: COLLAGENASE CLOSTRIDIUM HISTOLYTICUM
  77. OXYCODONE [Concomitant]
     Active Substance: OXYCODONE
  78. MAGNESIUM OXIDE. [Concomitant]
     Active Substance: MAGNESIUM OXIDE
  79. SPIRONOLACTONE. [Concomitant]
     Active Substance: SPIRONOLACTONE
  80. CLINDAMYCIN. [Concomitant]
     Active Substance: CLINDAMYCIN
  81. MORPHINE SULFATE. [Concomitant]
     Active Substance: MORPHINE SULFATE
  82. AMLODIPINE BESYLATE. [Concomitant]
     Active Substance: AMLODIPINE BESYLATE
  83. NIFEDIPINE. [Concomitant]
     Active Substance: NIFEDIPINE
  84. BENICAR [Concomitant]
     Active Substance: OLMESARTAN MEDOXOMIL
  85. CLONIDINE. [Concomitant]
     Active Substance: CLONIDINE
  86. CHANTIX [Concomitant]
     Active Substance: VARENICLINE TARTRATE

REACTIONS (1)
  - Chronic kidney disease [Not Recovered/Not Resolved]

NARRATIVE: CASE EVENT DATE: 2009
